FAERS Safety Report 7868135-9 (Version None)
Quarter: 2011Q4

REPORT INFORMATION
  Report Type: 
  Country: None (occurrence: None)
  Receive Date: 20111028
  Receipt Date: 20111014
  Transmission Date: 20120403
  Serious: Yes (Other)
  Sender: FDA-Public Use
  Company Number: NZ-ELI_LILLY_AND_COMPANY-CA201110003559

PATIENT
  Sex: Female

DRUGS (11)
  1. CLOPIXOL [Concomitant]
  2. ZYPREXA [Suspect]
     Indication: SCHIZOPHRENIA
     Dosage: 20 MG, EACH EVENING
  3. ZYPREXA [Suspect]
     Dosage: 40 MG, UNK
  4. RISPERDAL [Concomitant]
  5. CLOZAPINE [Concomitant]
  6. ATIVAN [Concomitant]
  7. COGENTIN [Concomitant]
  8. VALPROIC ACID [Concomitant]
  9. STELAZINE [Concomitant]
  10. ZYPREXA [Suspect]
     Indication: SCHIZOPHRENIA
     Dosage: 1 DF, UNK
     Dates: start: 20040301
  11. ZYPREXA [Suspect]
     Dosage: 10 MG, UNK

REACTIONS (15)
  - PANCREATITIS [None]
  - DIABETES MELLITUS [None]
  - FATIGUE [None]
  - RENAL FAILURE [None]
  - DIABETIC KETOACIDOSIS [None]
  - THROMBOCYTOPENIA [None]
  - HYPERSOMNIA [None]
  - CEREBROVASCULAR ACCIDENT [None]
  - MENTAL IMPAIRMENT [None]
  - MEMORY IMPAIRMENT [None]
  - ANAEMIA [None]
  - OEDEMA PERIPHERAL [None]
  - PYREXIA [None]
  - DEPRESSION [None]
  - OVERDOSE [None]
